FAERS Safety Report 6765057-1 (Version None)
Quarter: 2010Q2

REPORT INFORMATION
  Report Type: 
  Country: None (occurrence: None)
  Receive Date: 20100609
  Receipt Date: 20100609
  Transmission Date: 20101027
  Serious: Yes (Hospitalization)
  Sender: FDA-Public Use
  Company Number: None

PATIENT
  Age: 60 Year
  Sex: Male
  Weight: 106.6 kg

DRUGS (2)
  1. LITHIUM [Suspect]
     Indication: BIPOLAR DISORDER
     Dosage: 900 MG AT BEDTIME PO
     Route: 048
     Dates: start: 20100204, end: 20100427
  2. LITHIUM [Suspect]
     Indication: MANIA
     Dosage: 900 MG AT BEDTIME PO
     Route: 048
     Dates: start: 20100204, end: 20100427

REACTIONS (4)
  - APHASIA [None]
  - DYSARTHRIA [None]
  - GAIT DISTURBANCE [None]
  - TREMOR [None]
